FAERS Safety Report 11933470 (Version 3)
Quarter: 2016Q1

REPORT INFORMATION
  Report Type: Spontaneous
  Country: US (occurrence: US)
  Receive Date: 20160121
  Receipt Date: 20160314
  Transmission Date: 20160526
  Serious: No
  Sender: FDA-Public Use
  Company Number: US-009507513-1601USA004638

PATIENT
  Age: 39 Year
  Sex: Female

DRUGS (3)
  1. METFORMIN [Concomitant]
     Active Substance: METFORMIN HYDROCHLORIDE
  2. FOLLISTIM [Suspect]
     Active Substance: FOLLITROPIN
     Indication: ASSISTED FERTILISATION
     Dosage: UNK
     Route: 058
     Dates: start: 20151003
  3. INOSITOL [Concomitant]
     Active Substance: INOSITOL

REACTIONS (5)
  - Drug ineffective [Not Recovered/Not Resolved]
  - Product container issue [Unknown]
  - Underdose [Not Recovered/Not Resolved]
  - No adverse event [Unknown]
  - Product quality issue [Unknown]

NARRATIVE: CASE EVENT DATE: 201510
